FAERS Safety Report 6119282-3 (Version None)
Quarter: 2009Q1

REPORT INFORMATION
  Report Type: 
  Country: None (occurrence: None)
  Receive Date: 20090316
  Receipt Date: 20090305
  Transmission Date: 20090719
  Serious: Yes (Other)
  Sender: FDA-Public Use
  Company Number: US-AMGEN-QUU337102

PATIENT
  Sex: Female
  Weight: 45.4 kg

DRUGS (2)
  1. ENBREL [Suspect]
     Indication: DRUG USE FOR UNKNOWN INDICATION
  2. HUMIRA [Suspect]
     Dates: start: 20080601

REACTIONS (14)
  - ADDISON'S DISEASE [None]
  - BLOOD ELECTROLYTES ABNORMAL [None]
  - BLOOD GLUCOSE DECREASED [None]
  - BLOOD PRESSURE DECREASED [None]
  - CHROMATURIA [None]
  - DEHYDRATION [None]
  - DIZZINESS [None]
  - HYPERSENSITIVITY [None]
  - LETHARGY [None]
  - MYOSITIS [None]
  - NAUSEA [None]
  - PAIN [None]
  - SOMNOLENCE [None]
  - VOMITING [None]
